FAERS Safety Report 14520216 (Version 3)
Quarter: 2018Q2

REPORT INFORMATION
  Report Type: Spontaneous
  Country: GB (occurrence: GB)
  Receive Date: 20180212
  Receipt Date: 20180612
  Transmission Date: 20180711
  Serious: No
  Sender: FDA-Public Use
  Company Number: PHHY2017GB188210

PATIENT
  Age: 70 Year
  Sex: Male

DRUGS (2)
  1. METRONIDAZOLE. [Suspect]
     Active Substance: METRONIDAZOLE
     Indication: STOMA SITE INFECTION
     Dosage: UNK
     Route: 065
  2. DUODOPA [Suspect]
     Active Substance: CARBIDOPA\LEVODOPA
     Indication: PARKINSON^S DISEASE
     Dosage: 1 DF, QD (100 ML CASSETTE)
     Route: 065

REACTIONS (13)
  - Parkinson^s disease [Unknown]
  - Pain [Unknown]
  - Gait disturbance [Unknown]
  - Stoma site pain [Unknown]
  - Stoma site haemorrhage [Unknown]
  - Stoma site erythema [Unknown]
  - Stoma site discharge [Unknown]
  - Mobility decreased [Unknown]
  - Stoma site inflammation [Unknown]
  - Paraesthesia [Unknown]
  - Stoma site infection [Recovering/Resolving]
  - Stoma site discomfort [Unknown]
  - Wrong technique in device usage process [Unknown]

NARRATIVE: CASE EVENT DATE: 201711
